FAERS Safety Report 21196626 (Version 1)
Quarter: 2022Q3

REPORT INFORMATION
  Report Type: Report from Study
  Country: AU (occurrence: AU)
  Receive Date: 20220810
  Receipt Date: 20220810
  Transmission Date: 20221026
  Serious: Yes (Other)
  Sender: FDA-Public Use
  Company Number: AU-JAZZ-2021-AU-020647

PATIENT
  Sex: Female

DRUGS (2)
  1. VYXEOS [Suspect]
     Active Substance: CYTARABINE\DAUNORUBICIN
     Indication: Product used for unknown indication
     Dosage: INDUCTION
  2. VYXEOS [Suspect]
     Active Substance: CYTARABINE\DAUNORUBICIN
     Dosage: CONSOLIDATION 1

REACTIONS (3)
  - Febrile neutropenia [Recovered/Resolved]
  - Pre-existing condition improved [Unknown]
  - Therapeutic response unexpected [Unknown]
